FAERS Safety Report 7209169-7 (Version None)
Quarter: 2010Q4

REPORT INFORMATION
  Report Type: 
  Country: None (occurrence: None)
  Receive Date: 20101222
  Receipt Date: 20101210
  Transmission Date: 20110411
  Serious: Yes (Other)
  Sender: FDA-Public Use
  Company Number: 020016

PATIENT
  Age: 18 Year
  Sex: Male

DRUGS (2)
  1. VIMPAT [Suspect]
  2. VALPROATE SODIUM [Suspect]

REACTIONS (1)
  - PANCREATITIS [None]
